FAERS Safety Report 8490877-5 (Version None)
Quarter: 2012Q2

REPORT INFORMATION
  Report Type: 
  Country: None (occurrence: None)
  Receive Date: 20120628
  Receipt Date: 20120628
  Transmission Date: 20120825
  Serious: No
  Sender: FDA-Public Use
  Company Number: None

PATIENT
  Sex: Female
  Weight: 63.5036 kg

DRUGS (1)
  1. TRAVATAN [Suspect]
     Dosage: 1 DROP EA. EYE Q EVENING MAY 31ST ONE + ONLY TIME

REACTIONS (4)
  - PRURITUS [None]
  - VISION BLURRED [None]
  - INSTILLATION SITE IRRITATION [None]
  - DIZZINESS [None]
